FAERS Safety Report 7348162-0 (Version None)
Quarter: 2011Q1

REPORT INFORMATION
  Report Type: 
  Country: None (occurrence: None)
  Receive Date: 20110311
  Receipt Date: 20110304
  Transmission Date: 20110831
  Serious: Yes (Hospitalization)
  Sender: FDA-Public Use
  Company Number: CN-ASTRAZENECA-2010SE12394

PATIENT
  Age: 60 Year
  Sex: Male

DRUGS (2)
  1. TALCID [Concomitant]
     Indication: GASTRIC ULCER
     Route: 065
  2. NEXIUM [Suspect]
     Indication: GASTRIC ULCER
     Route: 048

REACTIONS (2)
  - PAPILLOEDEMA [None]
  - VISUAL ACUITY REDUCED [None]
